FAERS Safety Report 6417907-6 (Version None)
Quarter: 2009Q4

REPORT INFORMATION
  Report Type: 
  Country: None (occurrence: None)
  Receive Date: 20091028
  Receipt Date: 20091020
  Transmission Date: 20100525
  Serious: Yes (Other)
  Sender: FDA-Public Use
  Company Number: B0592979A

PATIENT
  Sex: Female
  Weight: 67 kg

DRUGS (2)
  1. MALARONE [Suspect]
     Indication: PROPHYLAXIS
     Route: 048
     Dates: start: 20090601, end: 20090701
  2. LEVOTHYROXINE SODIUM [Concomitant]
     Dosage: 50MG PER DAY
     Route: 048
     Dates: start: 20030101

REACTIONS (3)
  - FATIGUE [None]
  - NEUTROPENIA [None]
  - NEUTROPHIL COUNT DECREASED [None]
